FAERS Safety Report 15854615 (Version 1)
Quarter: 2019Q1

REPORT INFORMATION
  Report Type: Report from Study
  Country: CA (occurrence: CA)
  Receive Date: 20190122
  Receipt Date: 20190122
  Transmission Date: 20190417
  Serious: Yes (Hospitalization, Other)
  Sender: FDA-Public Use
  Company Number: CA-IPSEN BIOPHARMACEUTICALS, INC.-2018-18250

PATIENT
  Age: 62 Year
  Sex: Male

DRUGS (1)
  1. SOMATULINE AUTOGEL 120MG [Suspect]
     Active Substance: LANREOTIDE ACETATE
     Indication: PANCREATIC NEUROENDOCRINE TUMOUR
     Dosage: DEEP SUBCUATENOUS
     Route: 058
     Dates: start: 20181121

REACTIONS (6)
  - Abdominal pain [Unknown]
  - Thrombosis [Recovering/Resolving]
  - Faeces discoloured [Unknown]
  - Headache [Unknown]
  - Diarrhoea [Unknown]
  - Pulmonary thrombosis [Recovering/Resolving]

NARRATIVE: CASE EVENT DATE: 20181122
